FAERS Safety Report 20772996 (Version 10)
Quarter: 2023Q4

REPORT INFORMATION
  Report Type: Other
  Country: DE (occurrence: None)
  Receive Date: 20220502
  Receipt Date: 20231115
  Transmission Date: 20240110
  Serious: Yes (Hospitalization, Other)
  Sender: FDA-Public Use
  Company Number: DE-ROCHE-2584024

PATIENT
  Age: 49 Year
  Sex: Female

DRUGS (8)
  1. OCREVUS [Suspect]
     Active Substance: OCRELIZUMAB
     Indication: Primary progressive multiple sclerosis
     Route: 042
     Dates: start: 20180831
  2. OCREVUS [Suspect]
     Active Substance: OCRELIZUMAB
     Route: 042
     Dates: start: 20200325
  3. OCREVUS [Suspect]
     Active Substance: OCRELIZUMAB
     Route: 042
     Dates: start: 202009
  4. OCREVUS [Suspect]
     Active Substance: OCRELIZUMAB
     Route: 042
     Dates: start: 20210722
  5. NABIXIMOLS [Suspect]
     Active Substance: NABIXIMOLS
     Indication: Product used for unknown indication
     Route: 065
     Dates: start: 2022
  6. DALFAMPRIDINE [Concomitant]
     Active Substance: DALFAMPRIDINE
     Dosage: 1-0-1
  7. BACLOFEN [Concomitant]
     Active Substance: BACLOFEN
     Dosage: 2-1-2 (5 MG AT NOON, 10 MG IN THE MORNING AND THE EVENING)?(1-1-2-1)
  8. PREGABALIN [Concomitant]
     Active Substance: PREGABALIN

REACTIONS (26)
  - Femoral neck fracture [Recovered/Resolved]
  - Gait disturbance [Not Recovered/Not Resolved]
  - Calculus bladder [Recovered/Resolved]
  - Hypertension [Recovered/Resolved]
  - Lymphocyte count decreased [Not Recovered/Not Resolved]
  - Aphasia [Not Recovered/Not Resolved]
  - Disturbance in attention [Not Recovered/Not Resolved]
  - Balance disorder [Not Recovered/Not Resolved]
  - Fall [Unknown]
  - Muscle spasticity [Not Recovered/Not Resolved]
  - Contusion [Unknown]
  - Sensory disturbance [Not Recovered/Not Resolved]
  - Urinary incontinence [Not Recovered/Not Resolved]
  - Anal incontinence [Recovered/Resolved]
  - B-lymphocyte abnormalities [Recovered/Resolved]
  - Middle insomnia [Recovering/Resolving]
  - Pain in extremity [Recovered/Resolved]
  - Musculoskeletal pain [Recovered/Resolved]
  - Asthenia [Recovering/Resolving]
  - COVID-19 [Unknown]
  - Arthralgia [Recovered/Resolved]
  - Fatigue [Not Recovered/Not Resolved]
  - Decubitus ulcer [Recovered/Resolved]
  - Immunoglobulins decreased [Not Recovered/Not Resolved]
  - Cystitis noninfective [Not Recovered/Not Resolved]
  - Paraesthesia [Not Recovered/Not Resolved]

NARRATIVE: CASE EVENT DATE: 20180831
